FAERS Safety Report 7894152-9 (Version None)
Quarter: 2011Q4

REPORT INFORMATION
  Report Type: 
  Country: None (occurrence: None)
  Receive Date: 20111104
  Receipt Date: 20111027
  Transmission Date: 20120403
  Serious: No
  Sender: FDA-Public Use
  Company Number: US-PFIZER INC-2011263001

PATIENT
  Sex: Female
  Weight: 63.5 kg

DRUGS (2)
  1. PREMARIN [Suspect]
     Indication: OESTROGEN REPLACEMENT THERAPY
     Dosage: 0.9 MG, DAILY
     Route: 048
     Dates: start: 20111005
  2. XANAX [Concomitant]
     Indication: SLEEP DISORDER
     Dosage: AS NEEDED

REACTIONS (1)
  - DRUG EFFECT DECREASED [None]
